FAERS Safety Report 7420949-5 (Version None)
Quarter: 2011Q2

REPORT INFORMATION
  Report Type: 
  Country: None (occurrence: None)
  Receive Date: 20110418
  Receipt Date: 20110408
  Transmission Date: 20111010
  Serious: Yes (Other)
  Sender: FDA-Public Use
  Company Number: B0713502A

PATIENT
  Sex: Male

DRUGS (2)
  1. LAMOTRIGINE [Suspect]
     Route: 065
  2. ACETAMINOPHEN [Suspect]
     Indication: HEADACHE
     Route: 065
     Dates: start: 20110403, end: 20110404

REACTIONS (2)
  - CONVULSION [None]
  - DRUG INTERACTION [None]
